FAERS Safety Report 4297688-5 (Version None)
Quarter: 2004Q1

REPORT INFORMATION
  Report Type: 
  Country: None (occurrence: None)
  Receive Date: 20040213
  Receipt Date: 20040130
  Transmission Date: 20041129
  Serious: Yes (Hospitalization)
  Sender: FDA-Public Use
  Company Number: RENA-10879

PATIENT
  Age: 64 Year
  Sex: Male

DRUGS (7)
  1. PHOSBLOCK [Suspect]
     Indication: HYPERPHOSPHATAEMIA
     Dosage: 2.5 G DAILY PO
     Route: 048
     Dates: start: 20031118, end: 20031218
  2. PHOSBLOCK [Suspect]
     Indication: HYPERPHOSPHATAEMIA
     Dosage: 3.5 G DAILY PO
     Route: 048
     Dates: start: 20031219
  3. WARFARIN POTASSIUM [Concomitant]
  4. AMLODIPINE BESYLATE [Concomitant]
  5. ALLOPURINOL [Concomitant]
  6. ASPIRIN [Concomitant]
  7. DIPYRIDAMOLE [Concomitant]

REACTIONS (1)
  - PLATELET COUNT DECREASED [None]
